FAERS Safety Report 10286808 (Version 1)
Quarter: 2014Q3

REPORT INFORMATION
  Report Type: Spontaneous
  Country: IN (occurrence: None)
  Receive Date: 20140707
  Receipt Date: 20140707
  Transmission Date: 20150326
  Serious: Yes (Other)
  Sender: FDA-Public Use
  Company Number: 2014VER00059

PATIENT
  Age: 36 Year
  Sex: Female

DRUGS (3)
  1. FENTANYL (FENTANYL) [Concomitant]
     Active Substance: FENTANYL
  2. TRANEXAMIC ACID. [Suspect]
     Active Substance: TRANEXAMIC ACID
     Indication: SPINAL ANAESTHESIA
     Route: 037
  3. MIDAZOLAM [Concomitant]
     Active Substance: MIDAZOLAM\MIDAZOLAM HYDROCHLORIDE

REACTIONS (3)
  - Drug administration error [None]
  - Status epilepticus [None]
  - Mental status changes [None]
